FAERS Safety Report 16346846 (Version 2)
Quarter: 2019Q2

REPORT INFORMATION
  Report Type: Spontaneous
  Country: US (occurrence: US)
  Receive Date: 20190523
  Receipt Date: 20190621
  Transmission Date: 20190711
  Serious: Yes (Hospitalization, Other)
  Sender: FDA-Public Use
  Company Number: US-GLAXOSMITHKLINE-US2019088076

PATIENT
  Age: 62 Year
  Sex: Female
  Weight: 79.37 kg

DRUGS (1)
  1. NUCALA [Suspect]
     Active Substance: MEPOLIZUMAB
     Indication: ASTHMA
     Dosage: 100 MG, CYC, EVERY 4 WEEKS
     Route: 058
     Dates: start: 20190515

REACTIONS (14)
  - Cold sweat [Recovered/Resolved]
  - Oxygen saturation decreased [Recovered/Resolved]
  - Loss of consciousness [Recovered/Resolved]
  - Sluggishness [Recovered/Resolved]
  - Breath sounds abnormal [Recovered/Resolved]
  - Presyncope [Recovered/Resolved]
  - Oropharyngeal swelling [Recovered/Resolved]
  - Anaphylactic reaction [Recovered/Resolved]
  - Pulse abnormal [Recovered/Resolved]
  - Blood pressure immeasurable [Recovered/Resolved]
  - Peripheral coldness [Recovered/Resolved]
  - Bronchospasm [Recovered/Resolved]
  - Depressed level of consciousness [Recovered/Resolved]
  - Heart rate decreased [Recovered/Resolved]

NARRATIVE: CASE EVENT DATE: 20190515
